FAERS Safety Report 9850128 (Version 1)
Quarter: 2014Q1

REPORT INFORMATION
  Report Type: Spontaneous
  Country: US (occurrence: None)
  Receive Date: 20140127
  Receipt Date: 20140127
  Transmission Date: 20141002
  Serious: Yes (Hospitalization)
  Sender: FDA-Public Use
  Company Number: None

PATIENT
  Age: 57 Year
  Sex: Male
  Weight: 77.3 kg

DRUGS (1)
  1. CISPLATIN [Suspect]

REACTIONS (4)
  - Dehydration [None]
  - Vomiting [None]
  - Nausea [None]
  - Hypophagia [None]
